FAERS Safety Report 6140439-X (Version None)
Quarter: 2009Q1

REPORT INFORMATION
  Report Type: 
  Country: None (occurrence: None)
  Receive Date: 20090331
  Receipt Date: 20090317
  Transmission Date: 20090719
  Serious: Yes (Hospitalization)
  Sender: FDA-Public Use
  Company Number: 232972K09USA

PATIENT
  Age: 37 Year
  Sex: Female

DRUGS (7)
  1. REBIF [Suspect]
     Indication: MULTIPLE SCLEROSIS
     Dosage: 22 MCG, 3 IN 1 WEEKS, SUBCUTANEOUS
     Route: 058
     Dates: start: 20081014
  2. NEURONTIN [Concomitant]
  3. BACLOFEN [Concomitant]
  4. FLEXERIL [Concomitant]
  5. OTHER UNSPECIFIED MEDICATIONS(ALL OTHER THERAPEUTIC PRODUCTS) [Concomitant]
  6. IBUPROFEN [Concomitant]
  7. NAPROXEN [Concomitant]

REACTIONS (6)
  - CHILLS [None]
  - CONFUSIONAL STATE [None]
  - HYPERTENSION [None]
  - LETHARGY [None]
  - TREMOR [None]
  - VOMITING [None]
